FAERS Safety Report 5195657-4 (Version None)
Quarter: 2006Q4

REPORT INFORMATION
  Report Type: 
  Country: None (occurrence: None)
  Receive Date: 20061222
  Receipt Date: 20061222
  Transmission Date: 20070319
  Serious: Yes (Disabling, Other)
  Sender: FDA-Public Use
  Company Number: None

PATIENT
  Age: 28 Year
  Sex: Male
  Weight: 72.5755 kg

DRUGS (4)
  1. CIPROFLOXACIN [Suspect]
     Indication: TESTICULAR PAIN
     Dosage: 500MG   ONCE DAILY   ORALLY
     Route: 048
     Dates: start: 20061130
  2. LEVOTHYROXINE SODIUM [Concomitant]
  3. METHYLPREDNISOLONE [Concomitant]
  4. CEPHALEXIN [Concomitant]

REACTIONS (5)
  - MUSCLE SPASMS [None]
  - MYALGIA [None]
  - PAIN [None]
  - PAIN IN EXTREMITY [None]
  - PARAESTHESIA [None]
